FAERS Safety Report 6313204-8 (Version None)
Quarter: 2009Q3

REPORT INFORMATION
  Report Type: 
  Country: None (occurrence: None)
  Receive Date: 20090818
  Receipt Date: 20090812
  Transmission Date: 20100115
  Serious: Yes (Death, Hospitalization, Other)
  Sender: FDA-Public Use
  Company Number: US-CELGENEUS-163-21880-09060353

PATIENT
  Sex: Male

DRUGS (2)
  1. REVLIMID [Suspect]
     Indication: MULTIPLE MYELOMA
     Dosage: 10 MG ALTERNATING WITH 5MG
     Route: 048
     Dates: start: 20060829, end: 20090301
  2. DIABETES MEDICATION [Suspect]
     Route: 065

REACTIONS (2)
  - HYPOGLYCAEMIA [None]
  - SEPSIS [None]
